FAERS Safety Report 23790090 (Version 2)
Quarter: 2024Q2

REPORT INFORMATION
  Report Type: Spontaneous
  Country: PE (occurrence: PE)
  Receive Date: 20240426
  Receipt Date: 20240605
  Transmission Date: 20240716
  Serious: Yes (Death, Hospitalization, Other)
  Sender: FDA-Public Use
  Company Number: PE-BoehringerIngelheim-2024-BI-024076

PATIENT
  Age: 78 Year
  Sex: Female

DRUGS (3)
  1. PRADAXA [Suspect]
     Active Substance: DABIGATRAN ETEXILATE MESYLATE
     Indication: Product used for unknown indication
     Route: 048
     Dates: start: 2021, end: 2022
  2. PRADAXA [Suspect]
     Active Substance: DABIGATRAN ETEXILATE MESYLATE
     Route: 048
     Dates: start: 2022, end: 2023
  3. PRADAXA [Suspect]
     Active Substance: DABIGATRAN ETEXILATE MESYLATE
     Route: 048
     Dates: start: 2023, end: 20240422

REACTIONS (8)
  - Fatigue [Fatal]
  - Pulmonary thrombosis [Unknown]
  - Pulmonary thrombosis [Unknown]
  - Haematemesis [Unknown]
  - Seizure [Unknown]
  - Renal vascular thrombosis [Unknown]
  - Hepatic vascular thrombosis [Unknown]
  - Poor quality sleep [Unknown]

NARRATIVE: CASE EVENT DATE: 20240401
